FAERS Safety Report 10134046 (Version 1)
Quarter: 2014Q2

REPORT INFORMATION
  Report Type: Spontaneous
  Country: US (occurrence: US)
  Receive Date: 20140428
  Receipt Date: 20140428
  Transmission Date: 20141212
  Serious: No
  Sender: FDA-Public Use
  Company Number: US-SANOFI-AVENTIS-2013SA066574

PATIENT
  Sex: 0

DRUGS (3)
  1. ALLEGRA [Suspect]
     Indication: HYPERSENSITIVITY
  2. ZYRTEC [Concomitant]
  3. ANTIBIOTICS [Concomitant]
     Indication: UPPER RESPIRATORY TRACT INFECTION

REACTIONS (1)
  - Drug ineffective for unapproved indication [Unknown]
